FAERS Safety Report 7863192-8 (Version None)
Quarter: 2011Q4

REPORT INFORMATION
  Report Type: 
  Country: None (occurrence: None)
  Receive Date: 20111027
  Receipt Date: 20101129
  Transmission Date: 20120403
  Serious: No
  Sender: FDA-Public Use
  Company Number: US-AMGEN-USASP2010006880

PATIENT
  Age: 65 Year
  Sex: Female
  Weight: 98 kg

DRUGS (9)
  1. PLAQUENIL [Concomitant]
     Dosage: 200 MG, UNK
  2. RESTASIS EMU [Concomitant]
     Dosage: 0.05 %, UNK
  3. DOXEPIN HCL [Concomitant]
     Dosage: 10 MG, UNK
  4. FOSAMAX [Concomitant]
     Dosage: 10 MG, UNK
  5. ARAVA [Concomitant]
     Dosage: 10 MG, UNK
  6. ENBREL [Suspect]
     Indication: PRODUCT USED FOR UNKNOWN INDICATION
     Dosage: 50 MG, QWK
     Route: 058
  7. DOLOBID [Concomitant]
     Dosage: 250 MG, UNK
  8. OGEN [Concomitant]
     Dosage: 0.625 UNK, UNK
  9. FOLIC ACID [Concomitant]
     Dosage: 200 A?G, UNK

REACTIONS (4)
  - INJECTION SITE ERYTHEMA [None]
  - INJECTION SITE WARMTH [None]
  - INJECTION SITE REACTION [None]
  - INJECTION SITE SWELLING [None]
